FAERS Safety Report 18822635 (Version 1)
Quarter: 2021Q1

REPORT INFORMATION
  Report Type: Spontaneous
  Country: US (occurrence: US)
  Receive Date: 20210202
  Receipt Date: 20210202
  Transmission Date: 20210419
  Serious: Yes (Other)
  Sender: FDA-Public Use
  Company Number: US-PACIRA-2021000027

PATIENT
  Age: 54 Year
  Sex: Male

DRUGS (15)
  1. ANCEF [Concomitant]
     Active Substance: CEFAZOLIN SODIUM
     Indication: PREOPERATIVE CARE
     Dosage: 1 G PRE?OP
     Route: 042
  2. COLACE [Concomitant]
     Active Substance: DOCUSATE SODIUM
     Indication: POSTOPERATIVE CARE
     Dosage: 100 MG
     Route: 065
  3. OXYCODONE 5MG [Concomitant]
     Active Substance: OXYCODONE
     Indication: PREOPERATIVE CARE
     Dosage: OXYCONTIN 10 MG PRE?OP
     Route: 065
  4. EXPAREL [Suspect]
     Active Substance: BUPIVACAINE
     Indication: POSTOPERATIVE ANALGESIA
     Dosage: 266 MG
     Route: 065
  5. CLINDAMYCIN. [Concomitant]
     Active Substance: CLINDAMYCIN
     Indication: POSTOPERATIVE CARE
     Dosage: 300
     Route: 065
  6. ENTERIC?COATED ASPIRIN 325 MG [Concomitant]
     Indication: THROMBOSIS PROPHYLAXIS
     Dosage: BID
     Route: 065
  7. VERSED [Concomitant]
     Active Substance: MIDAZOLAM HYDROCHLORIDE
     Indication: PREOPERATIVE CARE
     Dosage: 2 MG PRE?OP
     Route: 042
  8. ACETAMINOPHEN. [Concomitant]
     Active Substance: ACETAMINOPHEN
     Indication: PREOPERATIVE CARE
     Dosage: MULTIMODAL PROTOCOL
     Route: 065
  9. GABAPENTIN. [Concomitant]
     Active Substance: GABAPENTIN
     Indication: POSTOPERATIVE CARE
     Dosage: BID FOR 2 WEEKS
     Route: 065
  10. VANC [Concomitant]
     Active Substance: VANCOMYCIN
     Indication: PREOPERATIVE CARE
     Dosage: 1 G PRE?OP
     Route: 042
  11. PERCOCET 5MG [Concomitant]
     Indication: POSTOPERATIVE ANALGESIA
     Dosage: 5 MG
     Route: 065
  12. FENTANYL. [Concomitant]
     Active Substance: FENTANYL
     Indication: PREOPERATIVE CARE
     Dosage: 100 MCG PRE?OP
     Route: 042
  13. MELOXICAM. [Concomitant]
     Active Substance: MELOXICAM
     Indication: POSTOPERATIVE CARE
     Dosage: 7.5 MULTIMODAL PROTOCOL
     Route: 065
  14. OXYCODONE 5MG [Concomitant]
     Active Substance: OXYCODONE
     Indication: PREOPERATIVE CARE
     Dosage: 5 MG
     Route: 065
  15. ZOFRAN [Concomitant]
     Active Substance: ONDANSETRON HYDROCHLORIDE
     Indication: POSTOPERATIVE CARE
     Dosage: 4
     Route: 065

REACTIONS (1)
  - Arthrofibrosis [Unknown]
